FAERS Safety Report 24570882 (Version 1)
Quarter: 2024Q4

REPORT INFORMATION
  Report Type: Spontaneous
  Country: JP (occurrence: JP)
  Receive Date: 20241101
  Receipt Date: 20241101
  Transmission Date: 20250115
  Serious: Yes (Other)
  Sender: ASTELLAS
  Company Number: JP-ASTELLAS-2024-AER-014868

PATIENT
  Age: 76 Year
  Sex: Male
  Weight: 59 kg

DRUGS (5)
  1. XTANDI [Suspect]
     Active Substance: ENZALUTAMIDE
     Indication: Prostatic disorder
     Route: 048
     Dates: start: 20240812, end: 20240903
  2. BICALUTAMIDE OD Tablets [Concomitant]
     Indication: Product used for unknown indication
     Route: 048
  3. Alfacalcidol Tablets [Concomitant]
     Indication: Product used for unknown indication
     Route: 048
  4. Lansoprazole OD Tablets [Concomitant]
     Indication: Product used for unknown indication
     Route: 048
  5. Fycompa tablets [Concomitant]
     Indication: Product used for unknown indication
     Route: 048

REACTIONS (2)
  - Seizure [Recovering/Resolving]
  - Product use issue [Unknown]

NARRATIVE: CASE EVENT DATE: 20240812
